FAERS Safety Report 4822906-1 (Version None)
Quarter: 2005Q4

REPORT INFORMATION
  Report Type: 
  Country: None (occurrence: None)
  Receive Date: 20051104
  Receipt Date: 20051019
  Transmission Date: 20060501
  Serious: Yes (Hospitalization)
  Sender: FDA-Public Use
  Company Number: P05-003

PATIENT
  Age: 64 Year
  Sex: Male

DRUGS (1)
  1. PROSTASCINT [Suspect]
     Indication: DIAGNOSTIC PROCEDURE
     Dates: start: 20050906

REACTIONS (7)
  - ARTHRALGIA [None]
  - MYALGIA [None]
  - PYREXIA [None]
  - RASH [None]
  - SERUM SICKNESS [None]
  - THROMBOCYTOPENIA [None]
  - VIRAL INFECTION [None]
